FAERS Safety Report 4881322-7 (Version None)
Quarter: 2005Q4

REPORT INFORMATION
  Report Type: 
  Country: None (occurrence: None)
  Receive Date: 20051212
  Receipt Date: 20051103
  Transmission Date: 20060501
  Serious: Yes (Other)
  Sender: FDA-Public Use
  Company Number: 2005-01953

PATIENT
  Sex: Male

DRUGS (9)
  1. VELCADE [Suspect]
     Indication: PROSTATE CANCER
     Dosage: SEE IMAGE
     Route: 042
     Dates: start: 20050915, end: 20050922
  2. VELCADE [Suspect]
     Indication: PROSTATE CANCER
     Dosage: SEE IMAGE
     Route: 042
     Dates: start: 20050801
  3. ACYCLOVIR [Suspect]
     Dosage: ORAL
     Route: 048
  4. NORVASC [Suspect]
     Indication: HYPERTENSION
     Dosage: ORAL
     Route: 048
  5. ZIAC [Suspect]
     Indication: HYPERTENSION
     Dosage: ORAL
     Route: 048
  6. CELEXA [Concomitant]
  7. SEPTRA [Concomitant]
  8. FELDENE [Concomitant]
  9. PROTONIX [Concomitant]

REACTIONS (3)
  - DIZZINESS [None]
  - HALLUCINATION [None]
  - ORTHOSTATIC HYPOTENSION [None]
